FAERS Safety Report 8597471-6 (Version None)
Quarter: 2012Q3

REPORT INFORMATION
  Report Type: 
  Country: None (occurrence: None)
  Receive Date: 20120816
  Receipt Date: 20120814
  Transmission Date: 20120928
  Serious: Yes (Other)
  Sender: FDA-Public Use
  Company Number: US-JNJFOC-20120712480

PATIENT

DRUGS (57)
  1. DOXORUBICIN HCL [Suspect]
     Indication: NON-HODGKIN'S LYMPHOMA
     Dosage: ON DAY 1
     Route: 042
  2. DOXORUBICIN HCL [Suspect]
     Dosage: ON DAY 1
     Route: 042
  3. DOXORUBICIN HCL [Suspect]
     Dosage: ON DAY 1
     Route: 042
  4. VELCADE [Suspect]
     Dosage: FOR EVERY 6 MONTHS FOR 2 YEARS OR TILL PROGRESSIVE DISEASE (MAINTENANCE)
     Route: 040
  5. RITUXIMAB [Suspect]
     Indication: WALDENSTROM'S MACROGLOBULINAEMIA
     Dosage: ON DAY 1
     Route: 042
  6. RITUXIMAB [Suspect]
     Dosage: ON DAY 1
     Route: 042
  7. VINCRISTINE [Suspect]
     Indication: NON-HODGKIN'S LYMPHOMA
     Dosage: ON DAY 1 NOT TO EXCEED 1.5 MG FROM LEVEL 1 AND 2 AND NOT TO EXCEED 2 MG FOR LEVEL 3
     Route: 042
  8. ACETAMINOPHEN [Concomitant]
     Indication: PROPHYLAXIS
     Route: 048
  9. VELCADE [Suspect]
     Indication: B-CELL LYMPHOMA
     Dosage: 1.0 TO 1.6 MG/M2 ON DAYS 1 AND 8
     Route: 040
  10. VELCADE [Suspect]
     Dosage: 1.0 TO 1.6 MG/M2 ON DAYS 1 AND 8
     Route: 040
  11. RITUXIMAB [Suspect]
     Dosage: MAINTENANCE
     Route: 042
  12. RITUXIMAB [Suspect]
     Dosage: ON DAY 1
     Route: 042
  13. CYCLOPHOSPHAMIDE [Suspect]
     Dosage: ON DAY 1
     Route: 042
  14. VINCRISTINE [Suspect]
     Dosage: ON DAY 1 NOT TO EXCEED 1.5 MG FROM LEVEL 1 AND 2 AND NOT TO EXCEED 2 MG FOR LEVEL 3
     Route: 042
  15. PREDNISONE TAB [Suspect]
     Indication: B-CELL LYMPHOMA
     Dosage: ON DAYS 1-5
     Route: 048
  16. DOXORUBICIN HCL [Suspect]
     Indication: LYMPHOMA
     Dosage: ON DAY 1
     Route: 042
  17. DOXORUBICIN HCL [Suspect]
     Dosage: ON DAY 1
     Route: 042
  18. RITUXIMAB [Suspect]
     Indication: LYMPHOCYTIC LYMPHOMA
     Dosage: MAINTENANCE
     Route: 042
  19. CYCLOPHOSPHAMIDE [Suspect]
     Indication: LYMPHOCYTIC LYMPHOMA
     Dosage: ON DAY 1
     Route: 042
  20. VELCADE [Suspect]
     Dosage: FOR EVERY 6 MONTHS FOR 2 YEARS OR TILL PROGRESSIVE DISEASE (MAINTENANCE)
     Route: 040
  21. VELCADE [Suspect]
     Dosage: FOR EVERY 6 MONTHS FOR 2 YEARS OR TILL PROGRESSIVE DISEASE (MAINTENANCE)
     Route: 040
  22. CYCLOPHOSPHAMIDE [Suspect]
     Indication: NON-HODGKIN'S LYMPHOMA
     Dosage: ON DAY 1
     Route: 042
  23. PREDNISONE TAB [Suspect]
     Indication: WALDENSTROM'S MACROGLOBULINAEMIA
     Dosage: ON DAYS 1-5
     Route: 048
  24. DIPHENHYDRAMINE HYDROCHLORIDE [Concomitant]
     Indication: PROPHYLAXIS
     Route: 048
  25. DOXORUBICIN HCL [Suspect]
     Indication: WALDENSTROM'S MACROGLOBULINAEMIA
     Dosage: ON DAY 1
     Route: 042
  26. DOXORUBICIN HCL [Suspect]
     Indication: B-CELL LYMPHOMA
     Dosage: ON DAY 1
     Route: 042
  27. DOXORUBICIN HCL [Suspect]
     Dosage: ON DAY 1
     Route: 042
  28. VELCADE [Suspect]
     Indication: LYMPHOMA
     Dosage: 1.0 TO 1.6 MG/M2 ON DAYS 1 AND 8
     Route: 040
  29. RITUXIMAB [Suspect]
     Indication: B-CELL LYMPHOMA
     Dosage: MAINTENANCE
     Route: 042
  30. RITUXIMAB [Suspect]
     Dosage: ON DAY 1
     Route: 042
  31. CYCLOPHOSPHAMIDE [Suspect]
     Indication: B-CELL LYMPHOMA
     Dosage: ON DAY 1
     Route: 042
  32. PREDNISONE TAB [Suspect]
     Indication: NON-HODGKIN'S LYMPHOMA
     Dosage: ON DAYS 1-5
     Route: 048
  33. DOXORUBICIN HCL [Suspect]
     Indication: LYMPHOCYTIC LYMPHOMA
     Dosage: ON DAY 1
     Route: 042
  34. VELCADE [Suspect]
     Indication: WALDENSTROM'S MACROGLOBULINAEMIA
     Dosage: 1.0 TO 1.6 MG/M2 ON DAYS 1 AND 8
     Route: 040
  35. VELCADE [Suspect]
     Dosage: 1.0 TO 1.6 MG/M2 ON DAYS 1 AND 8
     Route: 040
  36. VELCADE [Suspect]
     Dosage: 1.0 TO 1.6 MG/M2 ON DAYS 1 AND 8
     Route: 040
  37. RITUXIMAB [Suspect]
     Indication: NON-HODGKIN'S LYMPHOMA
     Dosage: MAINTENANCE
     Route: 042
  38. VINCRISTINE [Suspect]
     Indication: WALDENSTROM'S MACROGLOBULINAEMIA
     Dosage: ON DAY 1 NOT TO EXCEED 1.5 MG FROM LEVEL 1 AND 2 AND NOT TO EXCEED 2 MG FOR LEVEL 3
     Route: 042
  39. DOXORUBICIN HCL [Suspect]
     Dosage: ON DAY 1
     Route: 042
  40. DOXORUBICIN HCL [Suspect]
     Dosage: ON DAY 1
     Route: 042
  41. RITUXIMAB [Suspect]
     Dosage: ON DAY 1
     Route: 042
  42. RITUXIMAB [Suspect]
     Dosage: MAINTENANCE
     Route: 042
  43. CYCLOPHOSPHAMIDE [Suspect]
     Indication: LYMPHOMA
     Dosage: ON DAY 1
     Route: 042
  44. VINCRISTINE [Suspect]
     Indication: LYMPHOMA
     Dosage: ON DAY 1 NOT TO EXCEED 1.5 MG FROM LEVEL 1 AND 2 AND NOT TO EXCEED 2 MG FOR LEVEL 3
     Route: 042
  45. VINCRISTINE [Suspect]
     Indication: B-CELL LYMPHOMA
     Dosage: ON DAY 1 NOT TO EXCEED 1.5 MG FROM LEVEL 1 AND 2 AND NOT TO EXCEED 2 MG FOR LEVEL 3
     Route: 042
  46. PREDNISONE TAB [Suspect]
     Dosage: ON DAYS 1-5
     Route: 048
  47. DOXORUBICIN HCL [Suspect]
     Dosage: ON DAY 1
     Route: 042
  48. VELCADE [Suspect]
     Dosage: FOR EVERY 6 MONTHS FOR 2 YEARS OR TILL PROGRESSIVE DISEASE (MAINTENANCE)
     Route: 040
  49. VELCADE [Suspect]
     Indication: LYMPHOCYTIC LYMPHOMA
     Dosage: FOR EVERY 6 MONTHS FOR 2 YEARS OR TILL PROGRESSIVE DISEASE (MAINTENANCE)
     Route: 040
  50. VELCADE [Suspect]
     Indication: NON-HODGKIN'S LYMPHOMA
     Dosage: FOR EVERY 6 MONTHS FOR 2 YEARS OR TILL PROGRESSIVE DISEASE (MAINTENANCE)
     Route: 040
  51. RITUXIMAB [Suspect]
     Indication: LYMPHOMA
     Dosage: MAINTENANCE
     Route: 042
  52. RITUXIMAB [Suspect]
     Dosage: ON DAY 1
     Route: 042
  53. CYCLOPHOSPHAMIDE [Suspect]
     Indication: WALDENSTROM'S MACROGLOBULINAEMIA
     Dosage: ON DAY 1
     Route: 042
  54. VINCRISTINE [Suspect]
     Indication: LYMPHOCYTIC LYMPHOMA
     Dosage: ON DAY 1 NOT TO EXCEED 1.5 MG FROM LEVEL 1 AND 2 AND NOT TO EXCEED 2 MG FOR LEVEL 3
     Route: 042
  55. PREDNISONE TAB [Suspect]
     Indication: LYMPHOMA
     Dosage: ON DAYS 1-5
     Route: 048
  56. PREDNISONE TAB [Suspect]
     Indication: LYMPHOCYTIC LYMPHOMA
     Dosage: ON DAYS 1-5
     Route: 048
  57. ONDANSETRON [Concomitant]
     Indication: NAUSEA
     Route: 042

REACTIONS (11)
  - PAIN [None]
  - THROMBOCYTOPENIA [None]
  - FATIGUE [None]
  - DYSPEPSIA [None]
  - BLOOD POTASSIUM DECREASED [None]
  - NEUTROPENIA [None]
  - RASH [None]
  - DIARRHOEA [None]
  - NAUSEA [None]
  - PERIPHERAL SENSORY NEUROPATHY [None]
  - MOTOR DYSFUNCTION [None]
